FAERS Safety Report 24963449 (Version 1)
Quarter: 2025Q1

REPORT INFORMATION
  Report Type: Spontaneous
  Country: US (occurrence: US)
  Receive Date: 20250213
  Receipt Date: 20250213
  Transmission Date: 20250408
  Serious: No
  Sender: AMGEN
  Company Number: US-AMGEN-USASP2025025575

PATIENT
  Age: 75 Year
  Sex: Female

DRUGS (35)
  1. PROLIA [Suspect]
     Active Substance: DENOSUMAB
     Indication: Product used for unknown indication
     Route: 065
  2. ALUMINUM HYDROXIDE GEL [Concomitant]
     Active Substance: ALGELDRATE
  3. AMOXICILLIN [Concomitant]
     Active Substance: AMOXICILLIN
  4. CHLORTHALIDONE [Concomitant]
     Active Substance: CHLORTHALIDONE
  5. CIPROFLOXACIN [Concomitant]
     Active Substance: CIPROFLOXACIN
  6. CYCLOBENZAPRINE [Concomitant]
     Active Substance: CYCLOBENZAPRINE
  7. HYDROCODONE [Concomitant]
     Active Substance: HYDROCODONE
  8. LEVOFLOXACIN [Concomitant]
     Active Substance: LEVOFLOXACIN
  9. METFORMIN [Concomitant]
     Active Substance: METFORMIN HYDROCHLORIDE
  10. PENICILLIN G POTASSIUM [Concomitant]
     Active Substance: PENICILLIN G POTASSIUM
  11. SULFAMETHOXAZOLE AND TRIMETHOPRIM [Concomitant]
     Active Substance: SULFAMETHOXAZOLE\TRIMETHOPRIM
  12. PRAVASTATIN [Concomitant]
     Active Substance: PRAVASTATIN
  13. APIXABAN [Concomitant]
     Active Substance: APIXABAN
  14. ASPIRIN [Concomitant]
     Active Substance: ASPIRIN
  15. CALCITONIN [Concomitant]
     Active Substance: CALCITONIN
  16. FISH OIL [Concomitant]
     Active Substance: FISH OIL
  17. FUROSEMIDE [Concomitant]
     Active Substance: FUROSEMIDE
  18. LACTULOSE [Concomitant]
     Active Substance: LACTULOSE
  19. LORATADINE [Concomitant]
     Active Substance: LORATADINE
  20. LOSARTAN [Concomitant]
     Active Substance: LOSARTAN
  21. MAGNESIUM OXIDE [Concomitant]
     Active Substance: MAGNESIUM OXIDE
  22. MIRABEGRON [Concomitant]
     Active Substance: MIRABEGRON
  23. MYCOPHENOLIC ACID [Concomitant]
     Active Substance: MYCOPHENOLIC ACID
  24. ACETAMINOPHEN [Concomitant]
     Active Substance: ACETAMINOPHEN
  25. AMLODIPINE BESYLATE [Concomitant]
     Active Substance: AMLODIPINE BESYLATE
  26. CHOLECALCIFEROL [Concomitant]
     Active Substance: CHOLECALCIFEROL
  27. CLOPIDOGREL BISULFATE [Concomitant]
     Active Substance: CLOPIDOGREL BISULFATE
  28. EZETIMIBE [Concomitant]
     Active Substance: EZETIMIBE
  29. METOPROLOL SUCCINATE [Concomitant]
     Active Substance: METOPROLOL SUCCINATE
  30. NITROGLYCERIN [Concomitant]
     Active Substance: NITROGLYCERIN
  31. POTASSIUM CHLORIDE [Concomitant]
     Active Substance: POTASSIUM CHLORIDE
  32. RIFAXIMIN [Concomitant]
     Active Substance: RIFAXIMIN
  33. LORTAB [Concomitant]
     Active Substance: ACETAMINOPHEN\HYDROCODONE BITARTRATE
  34. AZASAN [Concomitant]
     Active Substance: AZATHIOPRINE
  35. TRADJENTA [Concomitant]
     Active Substance: LINAGLIPTIN

REACTIONS (1)
  - Urticaria [Unknown]

NARRATIVE: CASE EVENT DATE: 20220201
